FAERS Safety Report 8227663-7 (Version None)
Quarter: 2012Q1

REPORT INFORMATION
  Report Type: 
  Country: None (occurrence: None)
  Receive Date: 20120322
  Receipt Date: 20120319
  Transmission Date: 20120608
  Serious: Yes (Hospitalization)
  Sender: FDA-Public Use
  Company Number: US-PFIZER INC-2012071591

PATIENT
  Sex: Female
  Weight: 84.807 kg

DRUGS (6)
  1. PROTONIX [Suspect]
     Indication: GASTRITIS
     Dosage: 40 MG, 1X/DAY
     Route: 048
     Dates: start: 20110101
  2. ZOLOFT [Concomitant]
     Indication: DEPRESSION
     Dosage: UNK
  3. HYDROCHLOROTHIAZIDE [Concomitant]
     Dosage: UNK
  4. LISINOPRIL [Concomitant]
     Indication: HYPERTENSION
     Dosage: UNK
  5. PROTONIX [Suspect]
     Indication: GASTROOESOPHAGEAL REFLUX DISEASE
  6. CARAFATE [Concomitant]
     Dosage: UNK

REACTIONS (4)
  - FLATULENCE [None]
  - ERUCTATION [None]
  - CHILLS [None]
  - CHEST PAIN [None]
